FAERS Safety Report 16884748 (Version 3)
Quarter: 2020Q1

REPORT INFORMATION
  Report Type: Spontaneous
  Country: FR (occurrence: FR)
  Receive Date: 20191004
  Receipt Date: 20200207
  Transmission Date: 20200409
  Serious: Yes (Other)
  Sender: FDA-Public Use
  Company Number: FR-MYLANLABS-2019M1091996

PATIENT
  Sex: Female

DRUGS (5)
  1. CODEINE [Suspect]
     Active Substance: CODEINE
     Dosage: 60 MILLIGRAM PER INTAKE
     Route: 065
  2. TRAMADOL. [Suspect]
     Active Substance: TRAMADOL
     Indication: SUBSTANCE USE
     Dosage: 300 MILLIGRAM,  PER INTAKE
     Route: 065
  3. SKENAN [Suspect]
     Active Substance: MORPHINE SULFATE
     Indication: SUBSTANCE USE
     Dosage: 60 TO 80 MG IN A SINGLE INTAKE, 2 TO 3 TIMES WEEKLY
     Route: 045
  4. SKENAN [Suspect]
     Active Substance: MORPHINE SULFATE
     Dosage: 200 MILLIGRAM
     Route: 045
  5. CODEINE [Suspect]
     Active Substance: CODEINE
     Indication: SUBSTANCE USE
     Dosage: 150 MILLIGRAM PER INTAKE

REACTIONS (14)
  - Drug tolerance increased [Unknown]
  - Diarrhoea [Unknown]
  - Yawning [Unknown]
  - Nightmare [Unknown]
  - Intentional product use issue [Unknown]
  - Feeling of body temperature change [Unknown]
  - Hyperhidrosis [Unknown]
  - Somnolence [Unknown]
  - Drug dependence [Unknown]
  - Tension [Unknown]
  - Feeling hot [Unknown]
  - Nausea [Unknown]
  - Rhinorrhoea [Unknown]
  - Drug abuse [Unknown]
